FAERS Safety Report 8450431 (Version 5)
Quarter: 2013Q4

REPORT INFORMATION
  Report Type: Report from Study
  Country: US (occurrence: US)
  Receive Date: 20120309
  Receipt Date: 20131108
  Transmission Date: 20140711
  Serious: Yes (Hospitalization, Other)
  Sender: FDA-Public Use
  Company Number: US-PFIZER INC-2012017403

PATIENT
  Age: 77 Year
  Sex: Female
  Weight: 68 kg

DRUGS (25)
  1. BLINDED CELECOXIB [Suspect]
     Indication: OSTEOARTHRITIS
     Dosage: HIGH, TID
     Route: 048
     Dates: start: 20100713, end: 20110622
  2. BLINDED IBUPROFEN [Suspect]
     Indication: OSTEOARTHRITIS
     Dosage: HIGH, TID
     Route: 048
     Dates: start: 20100713, end: 20110622
  3. BLINDED IBUPROFEN [Suspect]
     Indication: OSTEOARTHRITIS
     Dosage: HIGH, TID
     Route: 048
     Dates: start: 20100713, end: 20110622
  4. BLINDED IBUPROFEN [Suspect]
     Indication: OSTEOARTHRITIS
     Dosage: HIGH, TID
     Route: 048
     Dates: start: 20100713, end: 20110622
  5. BLINDED NAPROXEN [Suspect]
     Indication: OSTEOARTHRITIS
     Dosage: HIGH, TID
     Route: 048
     Dates: start: 20100713, end: 20110622
  6. BLINDED NAPROXEN [Suspect]
     Indication: OSTEOARTHRITIS
     Dosage: HIGH, TID
     Route: 048
     Dates: start: 20100713, end: 20110622
  7. BLINDED NAPROXEN [Suspect]
     Indication: OSTEOARTHRITIS
     Dosage: HIGH, TID
     Route: 048
     Dates: start: 20100713, end: 20110622
  8. BLINDED PLACEBO [Suspect]
     Indication: OSTEOARTHRITIS
     Dosage: HIGH, TID
     Route: 048
     Dates: start: 20100713, end: 20110622
  9. BLINDED CELECOXIB [Suspect]
     Indication: RHEUMATOID ARTHRITIS
  10. BLINDED IBUPROFEN [Suspect]
     Indication: RHEUMATOID ARTHRITIS
  11. BLINDED IBUPROFEN [Suspect]
     Indication: RHEUMATOID ARTHRITIS
  12. BLINDED IBUPROFEN [Suspect]
     Indication: RHEUMATOID ARTHRITIS
  13. BLINDED NAPROXEN [Suspect]
     Indication: RHEUMATOID ARTHRITIS
  14. BLINDED NAPROXEN [Suspect]
     Indication: RHEUMATOID ARTHRITIS
  15. BLINDED NAPROXEN [Suspect]
     Indication: RHEUMATOID ARTHRITIS
  16. BLINDED PLACEBO [Suspect]
     Indication: RHEUMATOID ARTHRITIS
  17. VERAPAMIL HCL [Concomitant]
     Indication: HYPERTENSION
     Dosage: 240 MG, 1X/DAY
     Route: 048
     Dates: start: 20040601, end: 20110903
  18. NEXIUM [Concomitant]
     Indication: GASTRITIS PROPHYLAXIS
     Dosage: 20 MG, 1X/DAY
     Route: 048
     Dates: start: 20100713
  19. LEVOTHROID [Concomitant]
     Indication: HYPOTHYROIDISM
     Dosage: 0.25 UG, 1X/DAY
     Route: 048
     Dates: start: 20100425
  20. LOVASTATIN [Concomitant]
     Indication: DYSLIPIDAEMIA
     Dosage: 40 MG, 1X/DAY
     Route: 048
     Dates: start: 2003
  21. MULTIVITAMINS [Concomitant]
     Indication: SUPPLEMENTATION THERAPY
     Dosage: 1 TAB
     Route: 048
     Dates: start: 1996
  22. OXYBUTYNIN [Concomitant]
     Indication: URINARY INCONTINENCE
     Dosage: 10 MG, 1X/DAY
     Route: 048
     Dates: start: 20041114
  23. BISACODYL [Concomitant]
     Indication: CONSTIPATION
     Dosage: 1 TAB
     Route: 048
     Dates: start: 201001
  24. RITUXAN [Concomitant]
     Indication: NON-HODGKIN^S LYMPHOMA
     Dosage: 1900 MG, WEEKLY
     Route: 042
     Dates: start: 20110715
  25. REVLIMID [Concomitant]
     Indication: NON-HODGKIN^S LYMPHOMA
     Dosage: 10 MG, 1X/DAY
     Route: 048
     Dates: start: 201107

REACTIONS (2)
  - Non-Hodgkin^s lymphoma [Recovered/Resolved]
  - Faecaloma [Recovered/Resolved]
